FAERS Safety Report 9078067 (Version 1)
Quarter: 2013Q1

REPORT INFORMATION
  Report Type: Spontaneous
  Country: PR (occurrence: PR)
  Receive Date: 20130130
  Receipt Date: 20130130
  Transmission Date: 20140127
  Serious: No
  Sender: FDA-Public Use
  Company Number: PR-ABBOTT-12P-131-0963063-00

PATIENT
  Age: 59 None
  Sex: Female
  Weight: 48.12 kg

DRUGS (9)
  1. HUMIRA 40 MG/0.8 ML PEN [Suspect]
     Indication: PSORIASIS
     Route: 058
     Dates: start: 20120620, end: 201208
  2. LEVOXYL [Concomitant]
     Indication: THYROID DISORDER
     Route: 048
  3. ZANTAC [Concomitant]
     Indication: HIATUS HERNIA
     Route: 048
  4. PREVACID [Concomitant]
     Indication: HIATUS HERNIA
     Route: 048
  5. FLUOCINONIDE [Concomitant]
     Indication: PSORIASIS
     Route: 061
  6. BETAMETAZONE LOTION [Concomitant]
     Indication: PSORIASIS
     Route: 061
  7. VITAMIN D3 [Concomitant]
     Indication: MINERAL SUPPLEMENTATION
     Route: 048
  8. KLONOPIN [Concomitant]
     Indication: PRODUCT USED FOR UNKNOWN INDICATION
     Route: 048
  9. IMODIUM [Concomitant]
     Indication: DIARRHOEA
     Route: 048

REACTIONS (7)
  - Dizziness [Recovered/Resolved]
  - Diarrhoea [None]
  - Headache [Recovered/Resolved]
  - Drug ineffective [Unknown]
  - Muscle spasms [Recovered/Resolved]
  - Asthenia [Recovered/Resolved]
  - Hypotension [Recovered/Resolved]
